FAERS Safety Report 6478048-5 (Version None)
Quarter: 2009Q4

REPORT INFORMATION
  Report Type: 
  Country: None (occurrence: None)
  Receive Date: 20091203
  Receipt Date: 20091203
  Transmission Date: 20100525
  Serious: Yes (Other)
  Sender: FDA-Public Use
  Company Number: None

PATIENT
  Age: 51 Year
  Sex: Female
  Weight: 66.6788 kg

DRUGS (1)
  1. FENTANYL-100 [Suspect]
     Indication: BACK PAIN
     Dosage: 1 PATCH EVERY 3 DAYS TRANSDERMAL
     Route: 062
     Dates: start: 20091120, end: 20091202

REACTIONS (9)
  - DIARRHOEA [None]
  - EMOTIONAL DISORDER [None]
  - FEELING OF BODY TEMPERATURE CHANGE [None]
  - MOOD SWINGS [None]
  - PARAESTHESIA [None]
  - SLEEP DISORDER [None]
  - URTICARIA [None]
  - WITHDRAWAL SYNDROME [None]
  - WRONG TECHNIQUE IN DRUG USAGE PROCESS [None]
